FAERS Safety Report 23772423 (Version 1)
Quarter: 2024Q2

REPORT INFORMATION
  Report Type: Spontaneous
  Country: JP (occurrence: JP)
  Receive Date: 20240423
  Receipt Date: 20240423
  Transmission Date: 20240715
  Serious: Yes (Hospitalization)
  Sender: FDA-Public Use
  Company Number: None

PATIENT
  Age: 69 Year
  Sex: Male
  Weight: 43 kg

DRUGS (16)
  1. OLANZAPINE [Suspect]
     Active Substance: OLANZAPINE
     Indication: Bipolar I disorder
     Dosage: 1 TABLET BEFORE BEDTIME
  2. BROTIZOLAM [Suspect]
     Active Substance: BROTIZOLAM
     Indication: Bipolar I disorder
     Dosage: 2 TABLETS BEFORE BEDTIME
  3. NITRAZEPAM [Suspect]
     Active Substance: NITRAZEPAM
     Indication: Bipolar I disorder
     Dosage: 1 TABLET BEFORE BEDTIME
  4. ESZOPICLONE [Suspect]
     Active Substance: ESZOPICLONE
     Indication: Bipolar I disorder
     Dosage: 1 TABLET BEFORE BEDTIME
  5. ESZOPICLONE [Suspect]
     Active Substance: ESZOPICLONE
     Indication: Insomnia
     Dosage: 1 TABLET BEFORE BEDTIME
  6. ESZOPICLONE [Suspect]
     Active Substance: ESZOPICLONE
     Indication: Bipolar I disorder
     Dosage: 1 TABLET FOR INSOMNIA AS NEEDED
  7. ESZOPICLONE [Suspect]
     Active Substance: ESZOPICLONE
     Indication: Insomnia
     Dosage: 1 TABLET FOR INSOMNIA AS NEEDED
  8. ZOPICLONE [Suspect]
     Active Substance: ZOPICLONE
     Indication: Bipolar I disorder
     Dosage: 1 TABLET BEFORE BEDTIME
  9. QUETIAPINE [Suspect]
     Active Substance: QUETIAPINE
     Indication: Bipolar I disorder
     Dosage: 1 TABLET BEFORE BEDTIME
  10. QUETIAPINE [Suspect]
     Active Substance: QUETIAPINE
     Dosage: 2 TABLETS AFTER BREAKFAST, AND LUNCH
  11. LITHIUM CARBONATE [Suspect]
     Active Substance: LITHIUM CARBONATE
     Indication: Bipolar I disorder
     Dosage: 3 TABLETS AFTER BREAKFAST, LUNCH, AND DINNER
  12. LITHIUM CARBONATE [Suspect]
     Active Substance: LITHIUM CARBONATE
     Dosage: 1 TABLET AFTER DINNER
  13. LORAZEPAM [Suspect]
     Active Substance: LORAZEPAM
     Indication: Bipolar I disorder
     Dosage: 1 TABLET FOR INSOMNIA AS NEEDED
  14. LORAZEPAM [Suspect]
     Active Substance: LORAZEPAM
     Indication: Insomnia
     Dosage: 1 TABLET FOR INSOMNIA AS NEEDED
  15. VALPROATE SODIUM [Suspect]
     Active Substance: VALPROATE SODIUM
     Dosage: EXTENDED RELEASE TABLETS, 4 TABLETS AFTER BREAKFAST, LUNCH, AND DINNER
  16. LANSOPRAZOLE [Suspect]
     Active Substance: LANSOPRAZOLE
     Dosage: 1 TABLET AFTER BREAKFAST

REACTIONS (5)
  - Foreign body aspiration [Recovered/Resolved]
  - Pneumonia [Recovering/Resolving]
  - Bronchial obstruction [Recovering/Resolving]
  - Somnolence [Unknown]
  - Dysphagia [Unknown]
